FAERS Safety Report 5400015-0 (Version None)
Quarter: 2007Q3

REPORT INFORMATION
  Report Type: 
  Country: None (occurrence: None)
  Receive Date: 20070726
  Receipt Date: 20070726
  Transmission Date: 20080115
  Serious: Yes (Hospitalization)
  Sender: FDA-Public Use
  Company Number: None

PATIENT
  Age: 76 Year
  Sex: Male

DRUGS (7)
  1. XELODA [Suspect]
     Indication: PANCREATIC CARCINOMA
  2. INSULIN [Concomitant]
  3. LISINOPRIL [Concomitant]
  4. OXYCONTIN [Concomitant]
  5. OXYCODONE HCL [Concomitant]
  6. GEMCITABINE [Concomitant]
  7. DOCETAXEL [Concomitant]

REACTIONS (2)
  - ASTHENIA [None]
  - DIARRHOEA [None]
